FAERS Safety Report 7494652-X (Version None)
Quarter: 2011Q2

REPORT INFORMATION
  Report Type: 
  Country: None (occurrence: None)
  Receive Date: 20110520
  Receipt Date: 20091105
  Transmission Date: 20111010
  Serious: Yes (Death, Other)
  Sender: FDA-Public Use
  Company Number: US-BAYER-2011-006654

PATIENT
  Sex: Male
  Weight: 87 kg

DRUGS (24)
  1. COUMADIN [Concomitant]
     Dosage: 2.5 MG, QD
  2. RED BLOOD CELLS [Concomitant]
     Dosage: 4 UNITS
     Dates: start: 20050315
  3. LISINOPRIL [Concomitant]
     Dosage: DAILY
     Route: 048
  4. DIGOXIN [Concomitant]
     Dosage: 0.25 MG, QD
     Route: 048
  5. SIMVASTATIN [Concomitant]
     Dosage: 40 MG, QD
     Route: 048
  6. FRESH FROZEN PLASMA [Concomitant]
     Dosage: 10 UNITS
     Dates: start: 20050315
  7. VERSED [Concomitant]
     Dosage: 3MG, 1 MG, 2 MG
     Route: 042
     Dates: start: 20050315, end: 20050315
  8. CEFUROXIME [Concomitant]
     Dosage: 1.5 G, UNK
     Route: 042
     Dates: start: 20050315, end: 20050315
  9. TRASYLOL [Suspect]
     Indication: TRICUSPID VALVE REPAIR
  10. ZAROXOLYN [Concomitant]
     Dosage: 2.5 MG, QD
     Route: 048
     Dates: start: 20050214
  11. ZOCOR [Concomitant]
     Dosage: 40 MG, QD
     Route: 048
  12. LASIX [Concomitant]
     Dosage: 160 MG, TID
     Route: 048
  13. ACETYLSALICYLIC ACID SRT [Concomitant]
     Route: 048
  14. HEPARIN [Concomitant]
     Dosage: 35,000 UNITS
     Route: 042
     Dates: start: 20050315, end: 20050315
  15. TRASYLOL [Suspect]
     Indication: MITRAL VALVE REPLACEMENT
     Dosage: LOADING DOSE 100ML, THEN 50ML/HR
     Route: 042
     Dates: start: 20050315, end: 20050315
  16. PROTAMINE SULFATE [Concomitant]
     Dosage: 350 MG, 50 MG, 50 MG
     Route: 042
     Dates: start: 20050315, end: 20050315
  17. AMIODARONE HCL [Concomitant]
     Dosage: 200 MG, BID
     Route: 048
  18. PROTONIX [Concomitant]
     Dosage: 40 MG, QD
     Route: 048
  19. COZAAR [Concomitant]
     Route: 048
  20. MILRINONE [Concomitant]
     Dosage: 0.35 MCG/HOUR, 0.15MCG/HOUR, 0.2MCG/HOUR, 0.5MCG/HOUR, 0.35MCG/HOUR
     Route: 042
     Dates: start: 20050315
  21. LEVOPHED [Concomitant]
     Dosage: 0.1, 0.4, 0.13, 0.4, 0.4, 0.15, 0.25, 0.25
     Route: 042
     Dates: start: 20050315
  22. VASOPRESSIN [Concomitant]
     Dosage: 5, 2, 3, 3
     Route: 042
     Dates: start: 20050315
  23. EPINEPHRINE [Concomitant]
     Dosage: 0.01, 0.02, 0.15, 0.1, 0.1
     Route: 042
     Dates: start: 20050315
  24. PLATELETS [Concomitant]
     Dosage: 6 UNITS
     Dates: start: 20050315

REACTIONS (8)
  - EMOTIONAL DISTRESS [None]
  - RENAL FAILURE [None]
  - PAIN [None]
  - STRESS [None]
  - FEAR [None]
  - MULTI-ORGAN FAILURE [None]
  - UNEVALUABLE EVENT [None]
  - ANXIETY [None]
